FAERS Safety Report 6653052-2 (Version None)
Quarter: 2010Q1

REPORT INFORMATION
  Report Type: 
  Country: None (occurrence: None)
  Receive Date: 20100326
  Receipt Date: 20100316
  Transmission Date: 20100710
  Serious: Yes (Hospitalization)
  Sender: FDA-Public Use
  Company Number: PHHY2008US01786

PATIENT
  Sex: Male

DRUGS (8)
  1. EXJADE [Suspect]
     Indication: HAEMOCHROMATOSIS
     Dosage: 1500 UNK, QD
     Route: 048
     Dates: start: 20071226, end: 20080110
  2. OXYCONTIN [Concomitant]
     Dosage: 20 MG, Q12H
  3. OXYCODONE HCL [Concomitant]
     Dosage: 5 MG, 1-2 PRN
  4. ALPRAZOLAM [Concomitant]
     Dosage: 0.5 MG, Q6-8 PRN
  5. PROTONIX [Concomitant]
     Dosage: 40 MG/DAY
  6. NORVASK [Concomitant]
     Dosage: 5 MG/DAY
  7. BENICAR [Concomitant]
     Dosage: UNK
     Dates: start: 20070101
  8. PROCRIT [Concomitant]

REACTIONS (12)
  - ANAEMIA [None]
  - BLOOD CREATININE INCREASED [None]
  - BLOOD UREA INCREASED [None]
  - DIALYSIS [None]
  - FATIGUE [None]
  - HAEMORRHAGE [None]
  - HYPOPHAGIA [None]
  - LETHARGY [None]
  - NAUSEA [None]
  - RENAL FAILURE [None]
  - RETICULOCYTE COUNT DECREASED [None]
  - VOMITING [None]
